FAERS Safety Report 9770240 (Version 2)
Quarter: 2014Q1

REPORT INFORMATION
  Report Type: Spontaneous
  Country: FR (occurrence: FR)
  Receive Date: 20131218
  Receipt Date: 20140206
  Transmission Date: 20141002
  Serious: Yes (Death, Hospitalization)
  Sender: FDA-Public Use
  Company Number: FR-B.I. PHARMACEUTICALS,INC./RIDGEFIELD-2013-BI-42366FF

PATIENT
  Age: 77 Year
  Sex: Female
  Weight: 80 kg

DRUGS (5)
  1. PRADAXA [Suspect]
     Indication: ATRIAL FIBRILLATION
     Dosage: 220 MG
     Route: 048
     Dates: start: 201309, end: 20130918
  2. CORDARONE [Suspect]
     Indication: ATRIAL FIBRILLATION
     Dosage: 200 MG
     Route: 048
     Dates: start: 201309
  3. DIFFU K [Concomitant]
     Indication: HYPOKALAEMIA
     Route: 048
     Dates: start: 201309
  4. INEXIUM 40 MG [Concomitant]
     Indication: DUODENAL ULCER PERFORATION
     Dosage: 40 MG
     Route: 048
     Dates: start: 201308
  5. TEMERIT [Concomitant]
     Indication: ATRIAL FIBRILLATION
     Dosage: 2.5 MG
     Dates: start: 20130909

REACTIONS (1)
  - Gastrointestinal haemorrhage [Fatal]
